FAERS Safety Report 7114288-X (Version None)
Quarter: 2010Q4

REPORT INFORMATION
  Report Type: 
  Country: None (occurrence: None)
  Receive Date: 20101119
  Receipt Date: 20101116
  Transmission Date: 20110411
  Serious: Yes (Other)
  Sender: FDA-Public Use
  Company Number: CHPA2010US17209

PATIENT
  Age: 16 Year
  Sex: Female
  Weight: 44.444 kg

DRUGS (2)
  1. EXCEDRIN (MIGRAINE) [Suspect]
     Indication: MIGRAINE
     Dosage: 2 TABLETS ONCE DAY
     Route: 048
     Dates: start: 20101103, end: 20101103
  2. DRUG THERAPY NOS [Concomitant]
     Indication: BIPOLAR DISORDER
     Route: 048

REACTIONS (5)
  - ABDOMINAL PAIN [None]
  - APPENDICECTOMY [None]
  - INCORRECT DOSE ADMINISTERED [None]
  - LAPAROSCOPIC SURGERY [None]
  - OVERDOSE [None]
